FAERS Safety Report 5920310-6 (Version None)
Quarter: 2008Q4

REPORT INFORMATION
  Report Type: 
  Country: None (occurrence: None)
  Receive Date: 20081016
  Receipt Date: 20081006
  Transmission Date: 20090506
  Serious: Yes (Hospitalization, Other)
  Sender: FDA-Public Use
  Company Number: HU-AMGEN-UK311751

PATIENT

DRUGS (11)
  1. NEULASTA [Suspect]
     Indication: CHEMOTHERAPY
     Route: 058
  2. CYCLOPHOSPHAMIDE [Concomitant]
  3. DOCETAXEL [Concomitant]
  4. DOXORUBICIN HYDROCHLORIDE [Concomitant]
  5. CARBOPLATIN [Concomitant]
  6. ETOPOSIDE [Concomitant]
  7. GEMCITABINE [Concomitant]
  8. CISPLATIN [Concomitant]
  9. PACLITAXEL [Concomitant]
  10. EPIRUBICIN [Concomitant]
  11. FLUOROURACIL [Concomitant]

REACTIONS (7)
  - BONE PAIN [None]
  - CHEST PAIN [None]
  - FEBRILE NEUTROPENIA [None]
  - HEADACHE [None]
  - LEUKOCYTOSIS [None]
  - MYALGIA [None]
  - NEUTROPENIA [None]
